FAERS Safety Report 25416514 (Version 3)
Quarter: 2025Q2

REPORT INFORMATION
  Report Type: Report from Study
  Country: US (occurrence: US)
  Receive Date: 20250610
  Receipt Date: 20250621
  Transmission Date: 20250716
  Serious: Yes (Hospitalization, Other)
  Sender: TAKEDA
  Company Number: US-TAKEDA-2025TUS048534

PATIENT
  Sex: Female

DRUGS (4)
  1. VEDOLIZUMAB [Suspect]
     Active Substance: VEDOLIZUMAB
     Indication: Colitis ulcerative
  2. VEDOLIZUMAB [Suspect]
     Active Substance: VEDOLIZUMAB
     Indication: Colitis ulcerative
  3. VEDOLIZUMAB [Suspect]
     Active Substance: VEDOLIZUMAB
  4. FENTANYL [Suspect]
     Active Substance: FENTANYL
     Indication: Product used for unknown indication

REACTIONS (17)
  - Poor venous access [Unknown]
  - Colitis ulcerative [Unknown]
  - Sjogren^s syndrome [Unknown]
  - Rheumatoid arthritis [Unknown]
  - Neuropathy peripheral [Unknown]
  - Systemic lupus erythematosus [Unknown]
  - Drug effect less than expected [Unknown]
  - Diarrhoea [Unknown]
  - Osteoporosis [Unknown]
  - Sciatica [Unknown]
  - Dermatitis contact [Unknown]
  - Pain [Unknown]
  - Skin disorder [Unknown]
  - Rubber sensitivity [Unknown]
  - Rotator cuff syndrome [Unknown]
  - Blood pressure increased [Unknown]
  - Migraine [Unknown]
